FAERS Safety Report 5106616-1 (Version None)
Quarter: 2006Q3

REPORT INFORMATION
  Report Type: 
  Country: None (occurrence: None)
  Receive Date: 20060918
  Receipt Date: 20060712
  Transmission Date: 20061208
  Serious: Yes (Hospitalization)
  Sender: FDA-Public Use
  Company Number: PHNU2006DE02509

PATIENT
  Sex: Male
  Weight: 80 kg

DRUGS (5)
  1. SANDIMMUNE [Suspect]
     Indication: LIVER TRANSPLANT
     Dosage: 200 MG DAILY
     Route: 048
     Dates: start: 19940101
  2. SANDIMMUNE [Suspect]
     Dosage: 50 MG, BID
     Route: 048
  3. SANDIMMUNE [Suspect]
     Dosage: 100 MG, BID
     Route: 048
  4. PROPAFENONE HCL [Suspect]
  5. RAMIPRIL [Suspect]

REACTIONS (6)
  - ATRIAL FIBRILLATION [None]
  - BLOOD CREATININE INCREASED [None]
  - DEPENDENCE ON RESPIRATOR [None]
  - INTUBATION [None]
  - PNEUMONIA PRIMARY ATYPICAL [None]
  - RENAL FAILURE [None]
